FAERS Safety Report 19542138 (Version 1)
Quarter: 2021Q3

REPORT INFORMATION
  Report Type: Report from Study
  Country: FR (occurrence: FR)
  Receive Date: 20210713
  Receipt Date: 20210713
  Transmission Date: 20211014
  Serious: Yes (Death, Hospitalization)
  Sender: FDA-Public Use
  Company Number: FR-BAXTER-2021BAX019931

PATIENT
  Age: 23 Year
  Sex: Male
  Weight: 50 kg

DRUGS (14)
  1. PECFENT [Concomitant]
     Active Substance: FENTANYL CITRATE
     Indication: TUMOUR PAIN
     Route: 065
  2. ZOLEDRONIC ACID [Suspect]
     Active Substance: ZOLEDRONIC ACID
     Indication: PRODUCT USED FOR UNKNOWN INDICATION
     Dosage: CYCLE 1
     Route: 042
  3. DOLIPRANE [Concomitant]
     Active Substance: ACETAMINOPHEN
     Indication: TUMOUR PAIN
     Route: 065
  4. ENDOXAN 50 MG, COMPRIME ENROBE [Suspect]
     Active Substance: CYCLOPHOSPHAMIDE
     Indication: PRODUCT USED FOR UNKNOWN INDICATION
     Dosage: 1 AND 2 CYCLES
     Route: 048
     Dates: start: 20201105, end: 20201122
  5. SIROLIMUS. [Suspect]
     Active Substance: SIROLIMUS
     Indication: PRODUCT USED FOR UNKNOWN INDICATION
     Dosage: CYCLES 1 AND 2
     Route: 048
     Dates: start: 20201105, end: 20201122
  6. METHOTREXATE SODIUM. [Suspect]
     Active Substance: METHOTREXATE SODIUM
     Indication: PRODUCT USED FOR UNKNOWN INDICATION
     Dosage: CYCLE 1 AND 2
     Route: 048
     Dates: start: 20201105, end: 20201122
  7. OXYCONTIN [Concomitant]
     Active Substance: OXYCODONE HYDROCHLORIDE
     Indication: TUMOUR PAIN
     Route: 065
  8. SIROLIMUS. [Suspect]
     Active Substance: SIROLIMUS
     Dosage: CYCLE 2, LAST DOSE ADMINISTERED BEFORE EVENT ONSET DATE, CUMULATIVE DOSE WAS 76 MG
     Route: 048
     Dates: start: 20201122, end: 20201122
  9. ZOLEDRONIC ACID [Suspect]
     Active Substance: ZOLEDRONIC ACID
     Dosage: CYCLE 2, LAST ADMINISTERED DOSE PRIOR TO SAE, CUMULATIVE DOSE WAS 4 MG
     Route: 042
     Dates: start: 20201106, end: 20201106
  10. METHOTREXATE SODIUM. [Suspect]
     Active Substance: METHOTREXATE SODIUM
     Dosage: CYCLE 2, LAST DOSE ADMINISTERED BEFORE EVENT ONSET DATE. CUMULATIVE DOS WAS 30MG.
     Route: 048
     Dates: start: 20201122, end: 20201122
  11. MOVICOL [Concomitant]
     Active Substance: POLYETHYLENE GLYCOL 3350\POTASSIUM CHLORIDE\SODIUM BICARBONATE\SODIUM CHLORIDE
     Indication: CONSTIPATION PROPHYLAXIS
     Route: 065
  12. ENDOXAN 50 MG, COMPRIME ENROBE [Suspect]
     Active Substance: CYCLOPHOSPHAMIDE
     Dosage: CYCLE 2, LAST DOSE ADMINISTERED BEFORE EVENT ONSET DATE, CUMULATIVE DOSE WAS 1100MG
     Route: 048
     Dates: start: 20201122, end: 20201122
  13. OXYNORMORO [Concomitant]
     Active Substance: OXYCODONE HYDROCHLORIDE
     Indication: TUMOUR PAIN
     Route: 065
  14. SETOFILM [Concomitant]
     Active Substance: ONDANSETRON
     Indication: PROPHYLAXIS OF NAUSEA AND VOMITING
     Route: 065

REACTIONS (2)
  - Disease progression [Fatal]
  - Pleural effusion [Not Recovered/Not Resolved]

NARRATIVE: CASE EVENT DATE: 20201123
